FAERS Safety Report 8227120-8 (Version None)
Quarter: 2012Q1

REPORT INFORMATION
  Report Type: 
  Country: None (occurrence: None)
  Receive Date: 20120322
  Receipt Date: 20120321
  Transmission Date: 20120608
  Serious: Yes (Death, Hospitalization)
  Sender: FDA-Public Use
  Company Number: FR-BAYER-2012-026446

PATIENT
  Age: 71 Year
  Sex: Male

DRUGS (1)
  1. NEXAVAR [Suspect]
     Indication: HEPATIC NEOPLASM MALIGNANT
     Dosage: 200 MG, UNK
     Route: 048
     Dates: start: 20120207, end: 20120208

REACTIONS (8)
  - HEPATITIS ACUTE [None]
  - DECREASED APPETITE [None]
  - RECTAL HAEMORRHAGE [None]
  - RENAL FAILURE [None]
  - HYPONATRAEMIA [None]
  - PANCREATITIS ACUTE [None]
  - ANURIA [None]
  - NAUSEA [None]
